FAERS Safety Report 6602671-8 (Version None)
Quarter: 2010Q1

REPORT INFORMATION
  Report Type: 
  Country: None (occurrence: None)
  Receive Date: 20100218
  Receipt Date: 20100209
  Transmission Date: 20100710
  Serious: Yes (Hospitalization)
  Sender: FDA-Public Use
  Company Number: FABR-1001164

PATIENT
  Age: 24 Year
  Sex: Male
  Weight: 70 kg

DRUGS (3)
  1. FABRAZYME [Suspect]
     Indication: FABRY'S DISEASE
     Dosage: 70 MG, Q2W, INTRAVENOUS; 35 MG, INTRAVENOUS
     Route: 042
     Dates: start: 20040622
  2. MICARDIS [Concomitant]
  3. FAMOTIDIN (FAMOTIDINE) [Concomitant]

REACTIONS (6)
  - ABDOMINAL PAIN [None]
  - EATING DISORDER [None]
  - GASTROINTESTINAL DISORDER [None]
  - HEADACHE [None]
  - VISION BLURRED [None]
  - WEIGHT DECREASED [None]
